FAERS Safety Report 7981960-9 (Version None)
Quarter: 2011Q4

REPORT INFORMATION
  Report Type: 
  Country: None (occurrence: None)
  Receive Date: 20111215
  Receipt Date: 20111205
  Transmission Date: 20120403
  Serious: Yes (Other)
  Sender: FDA-Public Use
  Company Number: US-BAYER-2011-039294

PATIENT
  Age: 18 Year
  Sex: Female
  Weight: 81.633 kg

DRUGS (2)
  1. BELLADONNA AND PHENOBARBITONE [Concomitant]
  2. YAZ [Suspect]
     Indication: CONTRACEPTION
     Dosage: UNK
     Route: 048
     Dates: start: 20080901, end: 20100301

REACTIONS (7)
  - GALLBLADDER DISORDER [None]
  - INJURY [None]
  - PAIN [None]
  - ABDOMINAL PAIN [None]
  - DYSPEPSIA [None]
  - PROCEDURAL PAIN [None]
  - CHOLECYSTITIS CHRONIC [None]
